FAERS Safety Report 7281773-X (Version None)
Quarter: 2011Q1

REPORT INFORMATION
  Report Type: 
  Country: None (occurrence: None)
  Receive Date: 20110208
  Receipt Date: 20100217
  Transmission Date: 20110831
  Serious: Yes (Other)
  Sender: FDA-Public Use
  Company Number: US-PFIZER INC-2009316203

PATIENT
  Sex: Female
  Weight: 56.689 kg

DRUGS (2)
  1. AMLODIPINE BESILATE [Concomitant]
     Indication: HYPERTENSION
     Dosage: 5 MG, UNK
  2. SUTENT [Suspect]
     Indication: RENAL CANCER
     Dosage: 50 MG, 1X/DAY
     Route: 048
     Dates: start: 20091210, end: 20100106

REACTIONS (7)
  - HAEMATOCHEZIA [None]
  - PALMAR-PLANTAR ERYTHRODYSAESTHESIA SYNDROME [None]
  - GLOSSODYNIA [None]
  - ABDOMINAL PAIN UPPER [None]
  - NAUSEA [None]
  - YELLOW SKIN [None]
  - DIZZINESS [None]
